FAERS Safety Report 4867043-5 (Version None)
Quarter: 2005Q4

REPORT INFORMATION
  Report Type: 
  Country: None (occurrence: None)
  Receive Date: 20051220
  Receipt Date: 19981006
  Transmission Date: 20060501
  Serious: Yes (Death, Hospitalization)
  Sender: FDA-Public Use
  Company Number: 8-98083-005G

PATIENT
  Age: 72 Year
  Sex: Female

DRUGS (1)
  1. GEMTUZUMAB OZOGAMICIN (GEMTUZUMAB OZOGAMICIN, INJECTION) [Suspect]
     Indication: ACUTE MYELOID LEUKAEMIA
     Dosage: 9 MG/SQ.M INTRAVENOUS 1 DOS
     Route: 042
     Dates: start: 19980309, end: 19980309

REACTIONS (9)
  - ANAEMIA [None]
  - ASTHENIA [None]
  - BLAST CELL COUNT INCREASED [None]
  - CEREBRAL INFARCTION [None]
  - CONVULSION [None]
  - DRY MOUTH [None]
  - GRAND MAL CONVULSION [None]
  - NEUTROPENIA [None]
  - THROMBOCYTOPENIA [None]
